FAERS Safety Report 13676757 (Version 1)
Quarter: 2017Q2

REPORT INFORMATION
  Report Type: Spontaneous
  Country: US (occurrence: US)
  Receive Date: 20170621
  Receipt Date: 20170621
  Transmission Date: 20170830
  Serious: Yes (Other)
  Sender: FDA-Public Use
  Company Number: None

PATIENT
  Age: 25 Year
  Sex: Female

DRUGS (2)
  1. BUPRENORPHINE-NALOXONE TAB 8-2 MG [Suspect]
     Active Substance: BUPRENORPHINE HYDROCHLORIDE\NALOXONE HYDROCHLORIDE
     Dosage: 8-2 MG 3 TABS QD SL
     Route: 060
     Dates: start: 20170612, end: 20170620
  2. SUBOXONE [Suspect]
     Active Substance: BUPRENORPHINE HYDROCHLORIDE\NALOXONE HYDROCHLORIDE
     Dosage: 8-2 MG 3 FILMS QD SL
     Route: 060
     Dates: start: 20170601, end: 20170612

REACTIONS (4)
  - Throat irritation [None]
  - Tonsillar hypertrophy [None]
  - Dysphagia [None]
  - Lip swelling [None]

NARRATIVE: CASE EVENT DATE: 20170620
